FAERS Safety Report 9307043 (Version 1)
Quarter: 2013Q2

REPORT INFORMATION
  Report Type: Spontaneous
  Country: US (occurrence: US)
  Receive Date: 20130523
  Receipt Date: 20130523
  Transmission Date: 20140414
  Serious: Yes (Hospitalization)
  Sender: FDA-Public Use
  Company Number: US-B.I. PHARMACEUTICALS,INC./RIDGEFIELD-2013-BI-14265BP

PATIENT
  Age: 76 Year
  Sex: Male
  Weight: 86.18 kg

DRUGS (13)
  1. PRADAXA [Suspect]
     Indication: ATRIAL FIBRILLATION
     Dates: start: 20110204, end: 20120123
  2. MUCINEX DM [Concomitant]
  3. DIGOXIN [Concomitant]
  4. DILTIAZEM [Concomitant]
  5. ISOSORBIDE MONONITRATE [Concomitant]
  6. LORATADINE [Concomitant]
  7. OXAZEPAM [Concomitant]
  8. VITAMIN K [Concomitant]
  9. LOPERAZINE [Concomitant]
  10. TRAZODONE [Concomitant]
  11. LASIX [Concomitant]
  12. IPRATROPIUM INHALER [Concomitant]
  13. ARFORMOTEROL [Concomitant]

REACTIONS (2)
  - Respiratory failure [Unknown]
  - Gastrointestinal haemorrhage [Unknown]
